FAERS Safety Report 5894878-2 (Version None)
Quarter: 2008Q3

REPORT INFORMATION
  Report Type: 
  Country: None (occurrence: None)
  Receive Date: 20080924
  Receipt Date: 20080722
  Transmission Date: 20090109
  Serious: Yes (Other)
  Sender: FDA-Public Use
  Company Number: US-ASTRAZENECA-2008UW14398

PATIENT
  Age: 41 Year
  Sex: Female

DRUGS (1)
  1. SEROQUEL [Suspect]
     Dates: start: 20080615, end: 20080707

REACTIONS (2)
  - CONFUSIONAL STATE [None]
  - CONVULSION [None]
